FAERS Safety Report 10086699 (Version 2)
Quarter: 2014Q3

REPORT INFORMATION
  Report Type: Spontaneous
  Country: JP (occurrence: JP)
  Receive Date: 20140418
  Receipt Date: 20140729
  Transmission Date: 20150326
  Serious: Yes (Other)
  Sender: FDA-Public Use
  Company Number: JP-ELI_LILLY_AND_COMPANY-JP201404003662

PATIENT
  Age: 59 Year
  Sex: Male

DRUGS (2)
  1. ALIMTA [Suspect]
     Active Substance: PEMETREXED DISODIUM
     Indication: LUNG ADENOCARCINOMA
  2. CISPLATIN. [Concomitant]
     Active Substance: CISPLATIN
     Indication: LUNG ADENOCARCINOMA

REACTIONS (3)
  - Scrotal abscess [Recovered/Resolved]
  - Appendicitis perforated [Recovered/Resolved]
  - Retroperitoneal abscess [Recovered/Resolved]
